FAERS Safety Report 18308784 (Version 7)
Quarter: 2022Q2

REPORT INFORMATION
  Report Type: Spontaneous
  Country: US (occurrence: US)
  Receive Date: 20200924
  Receipt Date: 20220502
  Transmission Date: 20220720
  Serious: No
  Sender: FDA-Public Use
  Company Number: US-PFIZER INC-2019553370

PATIENT
  Age: 89 Year
  Sex: Male

DRUGS (2)
  1. LYRICA [Suspect]
     Active Substance: PREGABALIN
     Indication: Pain
     Dosage: 200 MG, AS NEEDED (1 CAPSULE BY MOUTH TWICE DAILY IN THE NIGHT (PM))
     Route: 048
  2. LYRICA [Suspect]
     Active Substance: PREGABALIN
     Indication: Phantom limb syndrome
     Dosage: 200 MG, 2X/DAY (TAKE 1 CAPSULE BY MOUTH TWICE DAILY)
     Route: 048

REACTIONS (2)
  - Pain in extremity [Unknown]
  - Electric shock sensation [Unknown]
